FAERS Safety Report 18844748 (Version 1)
Quarter: 2021Q1

REPORT INFORMATION
  Report Type: Spontaneous
  Country: CH (occurrence: CH)
  Receive Date: 20210203
  Receipt Date: 20210203
  Transmission Date: 20210419
  Serious: No
  Sender: FDA-Public Use
  Company Number: CH-EXELIXIS-CABO-20032403

PATIENT

DRUGS (2)
  1. CABOMETYX [Suspect]
     Active Substance: CABOZANTINIB S-MALATE
     Indication: NEUROENDOCRINE CARCINOMA METASTATIC
     Dosage: 40 MG, QD
     Dates: start: 20200906, end: 20200921
  2. CABOMETYX [Suspect]
     Active Substance: CABOZANTINIB S-MALATE
     Dosage: 40 MG/DAY TWO DAY ON, ONE DAY OF

REACTIONS (3)
  - Off label use [Unknown]
  - Fatigue [Unknown]
  - Inappropriate schedule of product administration [Unknown]
